FAERS Safety Report 7167820-4 (Version None)
Quarter: 2010Q4

REPORT INFORMATION
  Report Type: 
  Country: None (occurrence: None)
  Receive Date: 20101216
  Receipt Date: 20101213
  Transmission Date: 20110411
  Serious: Yes (Other)
  Sender: FDA-Public Use
  Company Number: CHPA2010US15849

PATIENT
  Age: 72 Year
  Sex: Male

DRUGS (1)
  1. GAS-X CHEWABLE TABLETS UNKNOWN (NCH) [Suspect]
     Dosage: UNK, PRN
     Route: 048

REACTIONS (1)
  - VASCULAR GRAFT [None]
